FAERS Safety Report 9734997 (Version 3)
Quarter: 2014Q1

REPORT INFORMATION
  Report Type: Spontaneous
  Country: DE (occurrence: DE)
  Receive Date: 20131206
  Receipt Date: 20140327
  Transmission Date: 20141002
  Serious: Yes (Death, Hospitalization)
  Sender: FDA-Public Use
  Company Number: DE-UCBSA-032837

PATIENT
  Sex: Male

DRUGS (1)
  1. NEUPRO [Suspect]
     Route: 062
     Dates: start: 2011, end: 201104

REACTIONS (2)
  - Cerebral haemorrhage [Fatal]
  - Application site erythema [Unknown]
